FAERS Safety Report 10050944 (Version 1)
Quarter: 2014Q2

REPORT INFORMATION
  Report Type: Spontaneous
  Country: US (occurrence: US)
  Receive Date: 20140401
  Receipt Date: 20140401
  Transmission Date: 20141212
  Serious: Yes (Other)
  Sender: FDA-Public Use
  Company Number: US-GLAXOSMITHKLINE-A1067375A

PATIENT
  Age: 47 Year
  Sex: Female

DRUGS (1)
  1. TYKERB [Suspect]
     Indication: ENDOCRINE NEOPLASM MALIGNANT
     Dosage: 250MG FOUR TIMES PER DAY
     Route: 065
     Dates: start: 20140210

REACTIONS (2)
  - Haematochezia [Unknown]
  - Diarrhoea [Unknown]
